FAERS Safety Report 7190101-X (Version None)
Quarter: 2010Q4

REPORT INFORMATION
  Report Type: 
  Country: None (occurrence: None)
  Receive Date: 20101223
  Receipt Date: 20101217
  Transmission Date: 20110411
  Serious: Yes (Other)
  Sender: FDA-Public Use
  Company Number: US-PFIZER INC-2010135979

PATIENT
  Sex: Female
  Weight: 64.399 kg

DRUGS (5)
  1. AROMASIN [Suspect]
     Indication: BREAST CANCER
     Dosage: 25 MG, DAILY
  2. EFFEXOR XR [Suspect]
     Indication: HOT FLUSH
     Dosage: 75 MG, DAILY
  3. EFFEXOR XR [Suspect]
     Dosage: 75 MG, 2X/DAY
  4. VENLAFAXINE HCL [Suspect]
     Indication: HOT FLUSH
     Dosage: 150 MG, DAILY
     Dates: start: 20101001
  5. ATENOLOL [Concomitant]

REACTIONS (7)
  - ARTHRALGIA [None]
  - DRUG INEFFECTIVE [None]
  - FEELING ABNORMAL [None]
  - HOT FLUSH [None]
  - NAUSEA [None]
  - OSTEOARTHRITIS [None]
  - OSTEOPOROSIS [None]
